FAERS Safety Report 19421598 (Version 1)
Quarter: 2021Q2

REPORT INFORMATION
  Report Type: Spontaneous
  Country: US (occurrence: US)
  Receive Date: 20210615
  Receipt Date: 20210615
  Transmission Date: 20210717
  Serious: Yes (Other)
  Sender: FDA-Public Use
  Company Number: None

PATIENT
  Age: 60 Year
  Sex: Female

DRUGS (12)
  1. XELJANZ [Suspect]
     Active Substance: TOFACITINIB CITRATE
     Indication: RHEUMATOID ARTHRITIS
     Route: 048
     Dates: start: 20210421
  2. TIZANIDINE. [Concomitant]
     Active Substance: TIZANIDINE
  3. LEVOTHYROXIN [Concomitant]
     Active Substance: LEVOTHYROXINE
  4. LEVOFLOACIN [Concomitant]
     Active Substance: LEVOFLOXACIN
  5. ZOLPIDEM [Concomitant]
     Active Substance: ZOLPIDEM TARTRATE
  6. OMEPRAZOLE. [Concomitant]
     Active Substance: OMEPRAZOLE
  7. OXYCODONE AND ACETAMINOPHEN [Concomitant]
     Active Substance: ACETAMINOPHEN\OXYCODONE HYDROCHLORIDE
  8. ZOLPIDEM [Concomitant]
     Active Substance: ZOLPIDEM TARTRATE
  9. FORTEO [Suspect]
     Active Substance: TERIPARATIDE
     Indication: OSTEOPOROSIS
     Route: 058
     Dates: start: 20210306
  10. GABAPENTIN. [Concomitant]
     Active Substance: GABAPENTIN
  11. LEVALBUTEROL. [Concomitant]
     Active Substance: LEVALBUTEROL
  12. CELECOXIB. [Concomitant]
     Active Substance: CELECOXIB

REACTIONS (2)
  - Lymphoma [None]
  - Lung neoplasm malignant [None]

NARRATIVE: CASE EVENT DATE: 20210606
